FAERS Safety Report 7947054-3 (Version None)
Quarter: 2011Q4

REPORT INFORMATION
  Report Type: 
  Country: None (occurrence: None)
  Receive Date: 20111129
  Receipt Date: 20111007
  Transmission Date: 20120403
  Serious: Yes (Hospitalization, Other)
  Sender: FDA-Public Use
  Company Number: US-ASTRAZENECA-2011SE60635

PATIENT
  Age: 84 Year
  Sex: Male

DRUGS (1)
  1. VIMOVO [Suspect]
     Dosage: 375 MG NAPROXEN + 20 MG ESOMEPRAZOLE MAGNESIUM DAILY
     Route: 048

REACTIONS (2)
  - RENAL DISORDER [None]
  - RENAL IMPAIRMENT [None]
